FAERS Safety Report 18437147 (Version 1)
Quarter: 2020Q4

REPORT INFORMATION
  Report Type: Spontaneous
  Country: US (occurrence: US)
  Receive Date: 20201028
  Receipt Date: 20201028
  Transmission Date: 20210114
  Serious: No
  Sender: FDA-Public Use
  Company Number: US-PFIZER INC-2020417842

PATIENT
  Age: 56 Year
  Sex: Female

DRUGS (2)
  1. IBRANCE [Suspect]
     Active Substance: PALBOCICLIB
     Indication: BREAST CANCER METASTATIC
     Dosage: 125 MG (IBRANCE/MBC/ STARTED 125MG, NOW HAS BEEN ON 100MG FOR 3 WEEKS)
     Dates: start: 20200909
  2. IBRANCE [Suspect]
     Active Substance: PALBOCICLIB
     Dosage: 100 MG (IBRANCE/MBC/ STARTED 125MG, NOW HAS BEEN ON 100MG FOR 3 WEEKS)

REACTIONS (1)
  - White blood cell count decreased [Recovering/Resolving]
